FAERS Safety Report 10182895 (Version 1)
Quarter: 2014Q2

REPORT INFORMATION
  Report Type: Spontaneous
  Country: GB (occurrence: GB)
  Receive Date: 20140520
  Receipt Date: 20140520
  Transmission Date: 20141212
  Serious: Yes (Other)
  Sender: FDA-Public Use
  Company Number: GB-009507513-1405GBR008407

PATIENT
  Age: 74 Year
  Sex: Female
  Weight: 74.2 kg

DRUGS (15)
  1. SITAGLIPTIN PHOSPHATE [Suspect]
     Dosage: UNK
     Dates: start: 20140407
  2. ASPIRIN [Concomitant]
     Dosage: UNK
     Dates: start: 20140110
  3. CETIRIZINE HYDROCHLORIDE [Concomitant]
     Dosage: UNK
     Dates: start: 20140430
  4. DIFFLAM (BENZYDAMINE HYDROCHLORIDE) [Concomitant]
     Dosage: UNK
     Dates: start: 20140305, end: 20140310
  5. DULOXETINE HYDROCHLORIDE [Concomitant]
     Dosage: UNK
     Dates: start: 20140110
  6. GELCLAIR [Concomitant]
     Dosage: UNK
     Dates: start: 20140305, end: 20140319
  7. LERCANIDIPINE HYDROCHLORIDE [Concomitant]
     Dosage: UNK
     Dates: start: 20140110
  8. LEVOTHYROXINE SODIUM [Concomitant]
     Dosage: UNK
     Dates: start: 20140205, end: 20140430
  9. METFORMIN [Concomitant]
     Dosage: UNK
     Dates: start: 20140110
  10. METOPROLOL TARTRATE [Concomitant]
     Dosage: UNK
     Dates: start: 20140110
  11. OMEPRAZOLE [Concomitant]
     Dosage: UNK
     Dates: start: 20140110
  12. ACETAMINOPHEN [Concomitant]
     Dosage: UNK
     Dates: start: 20140110
  13. ACIDEX (CALCIUM CARBONATE (+) SODIUM ALGINATE (+) SODIUM BICARBONATE) [Concomitant]
     Dosage: UNK
     Dates: start: 20140205, end: 20140305
  14. PREDNISOLONE [Concomitant]
     Dosage: UNK
     Dates: start: 20140430
  15. SIMVASTATIN [Concomitant]
     Dosage: UNK
     Dates: start: 20140110

REACTIONS (1)
  - Lip blister [Unknown]
